FAERS Safety Report 9451577 (Version 1)
Quarter: 2013Q3

REPORT INFORMATION
  Report Type: Spontaneous
  Country: US (occurrence: US)
  Receive Date: 20130811
  Receipt Date: 20130811
  Transmission Date: 20140515
  Serious: Yes (Other)
  Sender: FDA-Public Use
  Company Number: US-CUBIST PHARMACEUTICAL, INC.-2012CBST000044

PATIENT
  Sex: 0

DRUGS (3)
  1. CUBICIN [Suspect]
     Indication: DIABETIC FOOT INFECTION
     Dosage: 4 MG/KG, UNK
     Route: 065
  2. CUBICIN [Suspect]
     Indication: OFF LABEL USE
  3. INVANZ [Concomitant]
     Indication: DIABETIC FOOT INFECTION
     Dosage: UNK

REACTIONS (1)
  - Vasculitic rash [Recovered/Resolved]
